FAERS Safety Report 10646098 (Version 1)
Quarter: 2014Q4

REPORT INFORMATION
  Report Type: Spontaneous
  Country: DE (occurrence: DE)
  Receive Date: 20141211
  Receipt Date: 20141211
  Transmission Date: 20150529
  Serious: Yes (Hospitalization)
  Sender: FDA-Public Use
  Company Number: DE-MYLANLABS-2014M1013602

PATIENT

DRUGS (6)
  1. FLUOROURACIL. [Suspect]
     Active Substance: FLUOROURACIL
     Dosage: 3200 MG/M2 (5 COURSES; 80% REDUCTION FROM 3RD COURSE)
     Route: 065
  2. CISPLATIN. [Suspect]
     Active Substance: CISPLATIN
     Dosage: 25 MG/M2
     Route: 065
     Dates: start: 201302
  3. IRINOTECAN [Suspect]
     Active Substance: IRINOTECAN
     Dosage: 165 MG/M2 (5 COURSES; 80% REDUCTION FROM 3RD COURSE)
     Route: 065
  4. GEMCITABINE [Suspect]
     Active Substance: GEMCITABINE\GEMCITABINE HYDROCHLORIDE
     Dosage: 1000 MG/M2
     Route: 065
     Dates: start: 201302
  5. FOLINIC ACID [Suspect]
     Active Substance: LEUCOVORIN
     Dosage: 200 MG/M2 (5 COURSES; 80% REDUCTION FROM 3RD COURSE)
     Route: 065
  6. OXALIPLATIN. [Suspect]
     Active Substance: OXALIPLATIN
     Dosage: 85 MG/M2 (5 COURSES; 80% REDUCTION FROM 3RD COURSE)
     Route: 065

REACTIONS (4)
  - Polyneuropathy [Unknown]
  - Fatigue [Unknown]
  - Peritonitis bacterial [Unknown]
  - Thrombocytopenia [Unknown]
